FAERS Safety Report 9535434 (Version 1)
Quarter: 2013Q3

REPORT INFORMATION
  Report Type: Report from Study
  Country: US (occurrence: US)
  Receive Date: 20130918
  Receipt Date: 20130918
  Transmission Date: 20140515
  Serious: Yes (Other)
  Sender: FDA-Public Use
  Company Number: US-ROCHE-1273646

PATIENT
  Sex: Female
  Weight: 83.08 kg

DRUGS (12)
  1. HERCEPTIN [Suspect]
     Indication: BREAST CANCER
     Route: 065
  2. HERCEPTIN [Suspect]
     Route: 065
  3. XELODA [Suspect]
     Indication: BREAST CANCER
     Dosage: EVERY 21 DAY CYCLE
     Route: 065
     Dates: start: 20120706
  4. PERJETA [Suspect]
     Indication: BREAST CANCER
     Route: 065
  5. LAPATINIB [Concomitant]
     Indication: BREAST CANCER
     Dosage: EVERY 21 DAY CYCLE
     Route: 065
     Dates: start: 20120706
  6. COUMADIN [Concomitant]
     Route: 065
  7. ARIXTRA [Concomitant]
  8. FEMARA [Concomitant]
  9. FULVESTRANT [Concomitant]
  10. TAMOXIFEN [Concomitant]
  11. ARIXTRA [Concomitant]
  12. TAXOL [Concomitant]
     Route: 065
     Dates: end: 201203

REACTIONS (12)
  - Metastases to liver [Not Recovered/Not Resolved]
  - Deep vein thrombosis [Unknown]
  - Pulmonary embolism [Unknown]
  - Erythema [Unknown]
  - Diarrhoea [Unknown]
  - Nerve root compression [Unknown]
  - Metastases to lung [Not Recovered/Not Resolved]
  - Metastases to bone [Not Recovered/Not Resolved]
  - Haemoglobin decreased [Unknown]
  - White blood cell count decreased [Unknown]
  - Platelet count decreased [Unknown]
  - International normalised ratio decreased [Unknown]
